FAERS Safety Report 5088403-6 (Version None)
Quarter: 2006Q3

REPORT INFORMATION
  Report Type: 
  Country: None (occurrence: None)
  Receive Date: 20060821
  Receipt Date: 20060814
  Transmission Date: 20061208
  Serious: Yes (Hospitalization)
  Sender: FDA-Public Use
  Company Number: 2006BI010411

PATIENT
  Age: 61 Year
  Sex: Female

DRUGS (13)
  1. AVONEX [Suspect]
     Indication: MULTIPLE SCLEROSIS
     Dosage: 30 U G; QW; IM
     Route: 030
     Dates: start: 20030509, end: 20030801
  2. AVONEX [Suspect]
     Indication: MULTIPLE SCLEROSIS
     Dosage: 30 UG; QW; IM
     Route: 030
     Dates: start: 20030801
  3. CYMBALTA [Concomitant]
  4. VALIUM [Concomitant]
  5. ZANAFLEX [Concomitant]
  6. TYLENOL W/ CODEINE [Concomitant]
  7. TOPAMAX [Concomitant]
  8. PROPRANOLOL [Concomitant]
  9. AMITRIPTYLINE HCL [Concomitant]
  10. PROTONIX [Concomitant]
  11. LESCOL [Concomitant]
  12. HYDROCHLOROTHIAZIDE [Concomitant]
  13. MULTI-VITAMIN [Concomitant]

REACTIONS (3)
  - ABASIA [None]
  - ASTHENIA [None]
  - NASOPHARYNGITIS [None]
